FAERS Safety Report 6879494-8 (Version None)
Quarter: 2010Q3

REPORT INFORMATION
  Report Type: 
  Country: None (occurrence: None)
  Receive Date: 20100727
  Receipt Date: 20100716
  Transmission Date: 20110219
  Serious: Yes (Hospitalization, Other)
  Sender: FDA-Public Use
  Company Number: US-ABBOTT-10P-163-0658227-00

PATIENT
  Sex: Female
  Weight: 77.18 kg

DRUGS (10)
  1. NIASPAN [Suspect]
     Indication: BLOOD TRIGLYCERIDES INCREASED
     Dates: start: 20090701, end: 20100301
  2. NIASPAN [Suspect]
     Dates: start: 20100616
  3. LOVAZA [Concomitant]
     Indication: PRODUCT USED FOR UNKNOWN INDICATION
  4. SIMVASTATIN [Concomitant]
     Indication: PRODUCT USED FOR UNKNOWN INDICATION
  5. ASPIRIN [Concomitant]
     Indication: PRODUCT USED FOR UNKNOWN INDICATION
  6. ANTARA (MICRONIZED) [Concomitant]
     Indication: PRODUCT USED FOR UNKNOWN INDICATION
  7. SERAQUEL [Concomitant]
     Indication: PRODUCT USED FOR UNKNOWN INDICATION
  8. MULTIPLE VITAMINS [Concomitant]
     Indication: VITAMIN SUPPLEMENTATION
  9. VITAMIN B [Concomitant]
     Indication: VITAMIN SUPPLEMENTATION
  10. COMPLEX B VITAMINS [Concomitant]
     Indication: VITAMIN SUPPLEMENTATION

REACTIONS (9)
  - ABDOMINAL PAIN [None]
  - ANKLE FRACTURE [None]
  - APPENDICITIS PERFORATED [None]
  - BLOOD TRIGLYCERIDES INCREASED [None]
  - FALL [None]
  - FLUSHING [None]
  - PURPURA [None]
  - PYREXIA [None]
  - SEPSIS [None]
